FAERS Safety Report 15574691 (Version 1)
Quarter: 2018Q4

REPORT INFORMATION
  Report Type: Spontaneous
  Country: US (occurrence: US)
  Receive Date: 20181026
  Receipt Date: 20181026
  Transmission Date: 20190205
  Serious: No
  Sender: FDA-Public Use
  Company Number: None

PATIENT
  Age: 58 Year
  Sex: Male

DRUGS (1)
  1. CARBOPLATIN INJ 150 / 15ML [Suspect]
     Active Substance: CARBOPLATIN
     Dosage: ?          OTHER FREQUENCY:UNKNOWN;?
     Route: 042
     Dates: start: 20181031

REACTIONS (1)
  - Off label use [None]

NARRATIVE: CASE EVENT DATE: 20181025
